FAERS Safety Report 10182452 (Version 1)
Quarter: 2014Q2

REPORT INFORMATION
  Report Type: Report from Study
  Country: SI (occurrence: SI)
  Receive Date: 20140520
  Receipt Date: 20140520
  Transmission Date: 20141212
  Serious: Yes (Death, Hospitalization)
  Sender: FDA-Public Use
  Company Number: SI-JNJFOC-20140511841

PATIENT
  Age: 83 Year
  Sex: Female

DRUGS (6)
  1. XARELTO [Suspect]
     Indication: ATRIAL FIBRILLATION
     Route: 048
  2. XARELTO [Suspect]
     Indication: CEREBROVASCULAR ACCIDENT PROPHYLAXIS
     Route: 048
  3. PROPRANOLOL [Concomitant]
     Route: 065
     Dates: start: 2004
  4. LEXAURIN [Concomitant]
     Route: 065
     Dates: start: 2004
  5. AMLOPIN [Concomitant]
     Route: 065
     Dates: start: 2004
  6. ENAP [Concomitant]
     Route: 065
     Dates: start: 2004

REACTIONS (2)
  - Death [Fatal]
  - Anaemia [Unknown]
